APPROVED DRUG PRODUCT: VALNAC
Active Ingredient: BETAMETHASONE VALERATE
Strength: EQ 0.1% BASE
Dosage Form/Route: CREAM;TOPICAL
Application: A070050 | Product #001 | TE Code: AB
Applicant: ACTAVIS MID ATLANTIC LLC
Approved: Oct 10, 1984 | RLD: No | RS: No | Type: RX